FAERS Safety Report 7919309-X (Version None)
Quarter: 2011Q4

REPORT INFORMATION
  Report Type: 
  Country: None (occurrence: None)
  Receive Date: 20111115
  Receipt Date: 20111115
  Transmission Date: 20120403
  Serious: No
  Sender: FDA-Public Use
  Company Number: None

PATIENT
  Age: 55 Year
  Sex: Female

DRUGS (2)
  1. LIDODERM [Suspect]
     Indication: PAIN IN EXTREMITY
     Dosage: TOPICALLY AS NEEDED  10/7/2011 3 PATCHES USED
     Route: 061
     Dates: start: 20111015
  2. LIDODERM [Suspect]
     Indication: PAIN IN EXTREMITY
     Dosage: TOPICALLY AS NEEDED  10/7/2011 3 PATCHES USED
     Route: 061
     Dates: start: 20111007

REACTIONS (2)
  - DRUG INEFFECTIVE [None]
  - PRODUCT ADHESION ISSUE [None]
